FAERS Safety Report 6992854-X (Version None)
Quarter: 2010Q3

REPORT INFORMATION
  Report Type: 
  Country: None (occurrence: None)
  Receive Date: 20100917
  Receipt Date: 20100913
  Transmission Date: 20110219
  Serious: Yes (Life-Threatening, Hospitalization, Other)
  Sender: FDA-Public Use
  Company Number: B0643673A

PATIENT
  Sex: Male

DRUGS (14)
  1. AUGMENTIN '125' [Suspect]
     Indication: ANTIBIOTIC PROPHYLAXIS
     Dosage: 1G SINGLE DOSE
     Route: 042
     Dates: start: 20100304, end: 20100304
  2. ROCURONIUM BROMIDE [Suspect]
     Dosage: 50MG SINGLE DOSE
     Route: 042
     Dates: start: 20100304, end: 20100304
  3. SUFENTA PRESERVATIVE FREE [Suspect]
     Dosage: 20MCG SINGLE DOSE
     Route: 042
     Dates: start: 20100304, end: 20100304
  4. DIPRIVAN [Suspect]
     Dosage: 100MG SINGLE DOSE
     Route: 042
     Dates: start: 20100304, end: 20100304
  5. KETAMINE HCL [Suspect]
     Dosage: 20MG SINGLE DOSE
     Route: 042
     Dates: start: 20100304, end: 20100304
  6. PAROXETINE HCL [Concomitant]
     Indication: PRODUCT USED FOR UNKNOWN INDICATION
     Route: 065
  7. CORENITEC [Concomitant]
     Indication: PRODUCT USED FOR UNKNOWN INDICATION
     Route: 065
  8. TAHOR [Concomitant]
     Indication: PRODUCT USED FOR UNKNOWN INDICATION
     Route: 065
  9. LERCANIDIPINE [Concomitant]
     Indication: PRODUCT USED FOR UNKNOWN INDICATION
     Route: 065
  10. PIASCLEDINE [Concomitant]
     Indication: PRODUCT USED FOR UNKNOWN INDICATION
     Route: 065
  11. IMOVANE [Concomitant]
     Indication: PRODUCT USED FOR UNKNOWN INDICATION
     Route: 065
  12. PYOSTACINE [Concomitant]
     Indication: PRODUCT USED FOR UNKNOWN INDICATION
     Route: 065
  13. COUGH SYRUP ,UNSPECIFIED [Concomitant]
     Indication: CHRONIC OBSTRUCTIVE PULMONARY DISEASE
     Route: 065
  14. XYLOCAINE W/ EPINEPHRINE [Concomitant]
     Route: 065
     Dates: start: 20100304, end: 20100304

REACTIONS (7)
  - ANAPHYLACTIC SHOCK [None]
  - BRONCHOSPASM [None]
  - CARDIAC ARREST [None]
  - HYPOTENSION [None]
  - OXYGEN SATURATION DECREASED [None]
  - RESPIRATORY DISORDER [None]
  - VENTRICULAR FIBRILLATION [None]
